FAERS Safety Report 11547458 (Version 1)
Quarter: 2015Q3

REPORT INFORMATION
  Report Type: Spontaneous
  Country: US (occurrence: US)
  Receive Date: 20150903
  Receipt Date: 20150903
  Transmission Date: 20151125
  Serious: No
  Sender: FDA-Public Use
  Company Number: US-ELI_LILLY_AND_COMPANY-US201102006605

PATIENT
  Sex: Male

DRUGS (2)
  1. HUMALOG MIX75/25 [Suspect]
     Active Substance: INSULIN LISPRO
     Indication: HYPERGLYCAEMIA
     Dosage: 20 U, UNK
  2. PREDNISONE. [Concomitant]
     Active Substance: PREDNISONE
     Indication: INFECTION

REACTIONS (3)
  - Blood glucose increased [Unknown]
  - Dizziness [Unknown]
  - Asthenia [Unknown]
